FAERS Safety Report 20637765 (Version 1)
Quarter: 2022Q1

REPORT INFORMATION
  Report Type: Spontaneous
  Country: EC (occurrence: EC)
  Receive Date: 20220325
  Receipt Date: 20220325
  Transmission Date: 20220423
  Serious: Yes (Death)
  Sender: FDA-Public Use
  Company Number: EC-KOREA IPSEN Pharma-2022-08340

PATIENT
  Age: 66 Year
  Sex: Male

DRUGS (1)
  1. DYSPORT [Suspect]
     Active Substance: ABOBOTULINUMTOXINA
     Indication: Muscle spasticity
     Dosage: 1000 IU. FREQUENCY: 4 MONTHS
     Route: 030
     Dates: start: 20210916, end: 20210916

REACTIONS (4)
  - Cardiopulmonary failure [Fatal]
  - Depression [Unknown]
  - General physical health deterioration [Unknown]
  - Blood pressure decreased [Unknown]

NARRATIVE: CASE EVENT DATE: 20220103
